FAERS Safety Report 8608432-2 (Version None)
Quarter: 2012Q3

REPORT INFORMATION
  Report Type: 
  Country: None (occurrence: None)
  Receive Date: 20120821
  Receipt Date: 20120810
  Transmission Date: 20120928
  Serious: Yes (Other)
  Sender: FDA-Public Use
  Company Number: US-ROCHE-1067736

PATIENT
  Sex: Male

DRUGS (1)
  1. ZELBORAF [Suspect]
     Indication: METASTATIC MALIGNANT MELANOMA
     Route: 048
     Dates: start: 20120304

REACTIONS (6)
  - SWELLING FACE [None]
  - RASH ERYTHEMATOUS [None]
  - FATIGUE [None]
  - DECREASED APPETITE [None]
  - DISEASE PROGRESSION [None]
  - MASS [None]
